FAERS Safety Report 7624671-1 (Version None)
Quarter: 2011Q3

REPORT INFORMATION
  Report Type: 
  Country: None (occurrence: None)
  Receive Date: 20110720
  Receipt Date: 20110625
  Transmission Date: 20111222
  Serious: No
  Sender: FDA-Public Use
  Company Number: US-B.I. PHARMACEUTICALS,INC./RIDGEFIELD-2011-BP-16374BP

PATIENT
  Sex: Female

DRUGS (4)
  1. UNSPECIFIED HIGH BLOOD PRESSURE MEDICATIONS [Concomitant]
     Indication: HYPERTENSION
  2. UNSPECIFIED HEART MEDICATIONS [Concomitant]
  3. SPIRIVA [Suspect]
     Indication: CHRONIC OBSTRUCTIVE PULMONARY DISEASE
     Dosage: 18 MCG
     Route: 055
     Dates: start: 20110301
  4. SYMBICORT [Suspect]
     Indication: CHRONIC OBSTRUCTIVE PULMONARY DISEASE
     Route: 055
     Dates: start: 20110301

REACTIONS (4)
  - URINARY TRACT INFECTION [None]
  - OXYGEN SATURATION DECREASED [None]
  - INSOMNIA [None]
  - WEIGHT INCREASED [None]
